FAERS Safety Report 16197736 (Version 1)
Quarter: 2019Q2

REPORT INFORMATION
  Report Type: Spontaneous
  Country: CA (occurrence: CA)
  Receive Date: 20190415
  Receipt Date: 20190415
  Transmission Date: 20190711
  Serious: Yes (Other)
  Sender: FDA-Public Use
  Company Number: CA-PFIZER INC-2019155645

PATIENT
  Age: 87 Year
  Sex: Female

DRUGS (3)
  1. TRANEXAMIC ACID. [Suspect]
     Active Substance: TRANEXAMIC ACID
     Dosage: 1000 MG (2 EVERY 6 HOURS)
     Route: 048
  2. LUMIGAN [Concomitant]
     Active Substance: BIMATOPROST
     Dosage: UNK
  3. MEGESTROL [Concomitant]
     Active Substance: MEGESTROL
     Dosage: UNK

REACTIONS (1)
  - Paralysis [Not Recovered/Not Resolved]
